FAERS Safety Report 5523621-1 (Version None)
Quarter: 2007Q4

REPORT INFORMATION
  Report Type: 
  Country: None (occurrence: None)
  Receive Date: 20071121
  Receipt Date: 20071109
  Transmission Date: 20080405
  Serious: Yes (Other)
  Sender: FDA-Public Use
  Company Number: GB-ASTRAZENECA-2007GB02278

PATIENT
  Age: 50 Year
  Sex: Male

DRUGS (6)
  1. BUDESONIDE [Suspect]
     Indication: ASTHMA
     Route: 055
  2. BECLOMETHASONE DIPROPIONATE [Suspect]
     Indication: ASTHMA
     Route: 055
  3. FLUTICASONE PROPIONATE [Suspect]
     Indication: ASTHMA
     Route: 055
  4. ALBUTEROL [Suspect]
     Route: 055
  5. TADALAFIL [Concomitant]
  6. STATIN (NOT SPECIFIED) [Concomitant]

REACTIONS (1)
  - PALPITATIONS [None]
